FAERS Safety Report 9154849 (Version 1)
Quarter: 2013Q1

REPORT INFORMATION
  Report Type: Spontaneous
  Country: US (occurrence: US)
  Receive Date: 20130311
  Receipt Date: 20130311
  Transmission Date: 20140127
  Serious: Yes (Other)
  Sender: FDA-Public Use
  Company Number: US-ASTRAZENECA-2013SE14841

PATIENT
  Sex: Female

DRUGS (6)
  1. ARIMIDEX [Suspect]
     Indication: BREAST CANCER
     Route: 048
     Dates: start: 2003, end: 200309
  2. SYMBICORT  PMDI [Suspect]
     Indication: WHEEZING
     Route: 055
     Dates: start: 2012
  3. NOLVADEX [Suspect]
     Indication: BREAST CANCER
     Route: 048
     Dates: start: 200309
  4. ESTROGEN [Suspect]
  5. XOPANEX [Suspect]
  6. SPIRIVA [Concomitant]

REACTIONS (6)
  - Lung neoplasm malignant [Unknown]
  - Haemorrhage [Unknown]
  - Candida infection [Unknown]
  - Arthritis [Unknown]
  - Osteoarthritis [Unknown]
  - Intentional drug misuse [Unknown]
